FAERS Safety Report 9842850 (Version 2)
Quarter: 2016Q1

REPORT INFORMATION
  Report Type: Spontaneous
  Country: US (occurrence: US)
  Receive Date: 20140124
  Receipt Date: 20160328
  Transmission Date: 20160526
  Serious: No
  Sender: FDA-Public Use
  Company Number: US-PFIZER INC-2014021770

PATIENT
  Age: 61 Year
  Sex: Female

DRUGS (4)
  1. CELEBREX [Suspect]
     Active Substance: CELECOXIB
     Dosage: UNK
  2. KEFLEX [Suspect]
     Active Substance: CEPHALEXIN
     Dosage: UNK
  3. NASICORTIN [Suspect]
     Active Substance: OXYMETAZOLINE HYDROCHLORIDE
     Dosage: UNK
  4. AUGMENTIN [Suspect]
     Active Substance: AMOXICILLIN\CLAVULANATE POTASSIUM
     Dosage: UNK

REACTIONS (1)
  - Drug hypersensitivity [Unknown]
